FAERS Safety Report 9500482 (Version 1)
Quarter: 2013Q3

REPORT INFORMATION
  Report Type: Spontaneous
  Country: US (occurrence: None)
  Receive Date: 20130904
  Receipt Date: 20130904
  Transmission Date: 20140515
  Serious: No
  Sender: FDA-Public Use
  Company Number: None

PATIENT
  Age: 68 Year
  Sex: Male
  Weight: 102.06 kg

DRUGS (2)
  1. CIALIS [Suspect]
     Indication: PREOPERATIVE CARE
     Route: 048
     Dates: start: 20130829, end: 20130902
  2. CIALIS [Suspect]
     Indication: PROSTATECTOMY
     Route: 048
     Dates: start: 20130829, end: 20130902

REACTIONS (2)
  - Back pain [None]
  - Gait disturbance [None]
